FAERS Safety Report 23551623 (Version 4)
Quarter: 2024Q4

REPORT INFORMATION
  Report Type: Spontaneous
  Country: US (occurrence: US)
  Receive Date: 20240222
  Receipt Date: 20241021
  Transmission Date: 20250115
  Serious: Yes (Other)
  Sender: BRISTOL-MYERS SQUIBB COMPANY
  Company Number: US-BRISTOL-MYERS SQUIBB COMPANY-2024-024758

PATIENT
  Age: 70 Year
  Sex: Female

DRUGS (2)
  1. CAMZYOS [Suspect]
     Active Substance: MAVACAMTEN
     Indication: Hypertrophic cardiomyopathy
     Route: 048
  2. MUCINEX [Concomitant]
     Active Substance: GUAIFENESIN
     Indication: Respiratory tract congestion

REACTIONS (11)
  - Hallucination [Unknown]
  - Fatigue [Unknown]
  - Weight increased [Unknown]
  - Gait inability [Unknown]
  - Wound haemorrhage [Unknown]
  - Blood cholesterol increased [Unknown]
  - Scab [Unknown]
  - Skin injury [Unknown]
  - Abdominal distension [Unknown]
  - Cough [Unknown]
  - Illness [Unknown]

NARRATIVE: CASE EVENT DATE: 20241014
